FAERS Safety Report 7821674-9 (Version None)
Quarter: 2011Q4

REPORT INFORMATION
  Report Type: 
  Country: None (occurrence: None)
  Receive Date: 20111018
  Receipt Date: 20111014
  Transmission Date: 20120403
  Serious: Yes (Other)
  Sender: FDA-Public Use
  Company Number: GB-PFIZER INC-2011247637

PATIENT
  Age: 42 Year
  Sex: Female

DRUGS (5)
  1. SIMVASTATIN [Concomitant]
     Dosage: UNK
  2. ATENOLOL [Concomitant]
     Dosage: UNK
  3. VARENICLINE TARTRATE [Suspect]
     Indication: SMOKING CESSATION THERAPY
     Dosage: UNK
  4. MORPHINE [Concomitant]
     Dosage: UNK
  5. VARENICLINE TARTRATE [Suspect]
     Dosage: 1 MG, 2X/DAY

REACTIONS (1)
  - RECTAL HAEMORRHAGE [None]
